FAERS Safety Report 5468870-6 (Version None)
Quarter: 2007Q3

REPORT INFORMATION
  Report Type: 
  Country: None (occurrence: None)
  Receive Date: 20070926
  Receipt Date: 20070917
  Transmission Date: 20080115
  Serious: Yes (Other)
  Sender: FDA-Public Use
  Company Number: US-PFIZER INC-2007078504

PATIENT
  Sex: Female
  Weight: 34.5 kg

DRUGS (4)
  1. CHANTIX [Suspect]
     Indication: SMOKING CESSATION THERAPY
     Dates: start: 20070501, end: 20070901
  2. WELLBUTRIN [Concomitant]
     Indication: DEPRESSION
  3. ADVAIR DISKUS 100/50 [Concomitant]
     Indication: ASTHMA
  4. SPIRIVA [Concomitant]
     Indication: CHRONIC OBSTRUCTIVE PULMONARY DISEASE

REACTIONS (1)
  - ASTHMA [None]
